FAERS Safety Report 5402260-7 (Version None)
Quarter: 2007Q3

REPORT INFORMATION
  Report Type: 
  Country: None (occurrence: None)
  Receive Date: 20070801
  Receipt Date: 20070725
  Transmission Date: 20080115
  Serious: Yes (Other)
  Sender: FDA-Public Use
  Company Number: BR-JNJFOC-20070706801

PATIENT
  Sex: Male

DRUGS (1)
  1. IMOSEC [Suspect]
     Indication: DIARRHOEA

REACTIONS (2)
  - DIZZINESS [None]
  - SYNCOPE [None]
